FAERS Safety Report 7373087-4 (Version None)
Quarter: 2011Q1

REPORT INFORMATION
  Report Type: 
  Country: None (occurrence: None)
  Receive Date: 20110324
  Receipt Date: 20110318
  Transmission Date: 20110831
  Serious: Yes (Hospitalization)
  Sender: FDA-Public Use
  Company Number: DE-PFIZER INC-2011046722

PATIENT
  Age: 67 Year
  Sex: Male
  Weight: 73 kg

DRUGS (3)
  1. VFEND [Suspect]
     Indication: CANDIDA TEST POSITIVE
     Dosage: 200 MG, 1X/DAY
     Route: 042
     Dates: start: 20110211, end: 20110221
  2. AMOXICILLIN AND CLAVULANATE POTASSIUM [Concomitant]
     Dosage: UNK
     Route: 042
     Dates: start: 20110201, end: 20110101
  3. ERYTHROMYCIN [Concomitant]
     Dosage: UNK
     Route: 042
     Dates: start: 20110201, end: 20110101

REACTIONS (2)
  - NEPHROPATHY TOXIC [None]
  - POLYURIA [None]
